FAERS Safety Report 6747416-6 (Version None)
Quarter: 2010Q2

REPORT INFORMATION
  Report Type: 
  Country: None (occurrence: None)
  Receive Date: 20100528
  Receipt Date: 20100520
  Transmission Date: 20101027
  Serious: Yes (Other)
  Sender: FDA-Public Use
  Company Number: US-JNJFOC-20100508520

PATIENT
  Sex: Female
  Weight: 55.79 kg

DRUGS (17)
  1. REMICADE [Suspect]
     Indication: RHEUMATOID ARTHRITIS
     Route: 042
  2. FOLIC ACID [Concomitant]
  3. ASPIRIN [Concomitant]
  4. LORATADINE [Concomitant]
     Indication: MULTIPLE ALLERGIES
  5. HCTZ [Concomitant]
  6. ZINC [Concomitant]
  7. METHOTREXATE [Concomitant]
     Route: 048
  8. POTASSIUM CHLORIDE [Concomitant]
  9. CO-Q10 [Concomitant]
  10. VITAMIN A [Concomitant]
  11. VITAMIN C [Concomitant]
  12. FISH OIL [Concomitant]
  13. FLAX SEED OIL [Concomitant]
  14. VITAMIN D [Concomitant]
  15. VITAMIN B COMPLEX CAP [Concomitant]
  16. VITAMIN E (TOCOPHERYL ACETATE) [Concomitant]
  17. GLUCOSAMINE WITH CHRONDROITIN [Concomitant]

REACTIONS (1)
  - MACULAR HOLE [None]
